FAERS Safety Report 6826947-4 (Version None)
Quarter: 2010Q3

REPORT INFORMATION
  Report Type: 
  Country: None (occurrence: None)
  Receive Date: 20100709
  Receipt Date: 20100703
  Transmission Date: 20110219
  Serious: Yes (Hospitalization)
  Sender: FDA-Public Use
  Company Number: CO-ROCHE-713098

PATIENT
  Sex: Female

DRUGS (6)
  1. CELLCEPT [Suspect]
     Indication: HEART TRANSPLANT
     Route: 048
     Dates: start: 20090619
  2. TACROLIMUS [Concomitant]
     Indication: HEART TRANSPLANT
     Route: 048
  3. PREDNISOLONE [Concomitant]
     Route: 048
  4. ENALAPRIL MALEATE [Concomitant]
     Route: 048
  5. FUROSEMIDE [Concomitant]
     Route: 048
  6. SPIRONOLACTONE [Concomitant]
     Route: 048

REACTIONS (4)
  - DIARRHOEA [None]
  - PYREXIA [None]
  - TRANSPLANT REJECTION [None]
  - VOMITING [None]
